FAERS Safety Report 21171337 (Version 1)
Quarter: 2022Q3

REPORT INFORMATION
  Report Type: Spontaneous
  Country: SK (occurrence: SK)
  Receive Date: 20220804
  Receipt Date: 20220804
  Transmission Date: 20221027
  Serious: Yes (Other)
  Sender: FDA-Public Use
  Company Number: SK-FreseniusKabi-FK202210579

PATIENT
  Age: 36 Year
  Sex: Male

DRUGS (3)
  1. PACLITAXEL [Suspect]
     Active Substance: PACLITAXEL
     Indication: Chemotherapy
     Dosage: TIP D1-6, NC 21 (PACLITAXEL, IPHOSPHAMIDE, CISPLATIN)
  2. CISPLATIN [Suspect]
     Active Substance: CISPLATIN
     Indication: Chemotherapy
     Dosage: TIP D1-6, NC 21 (PACLITAXEL, IPHOSPHAMIDE, CISPLATIN)
  3. IFOSFAMIDE [Suspect]
     Active Substance: IFOSFAMIDE
     Indication: Chemotherapy
     Dosage: TIP D1-6, NC 21 (PACLITAXEL, IPHOSPHAMIDE, CISPLATIN)

REACTIONS (5)
  - Febrile neutropenia [Unknown]
  - Thrombocytopenia [Unknown]
  - Sepsis [Unknown]
  - Ileus [Unknown]
  - Oral fungal infection [Unknown]
